FAERS Safety Report 7275569 (Version 6)
Quarter: 2014Q4

REPORT INFORMATION
  Report Type: Spontaneous
  Country: US (occurrence: US)
  Receive Date: 20100211
  Receipt Date: 20141021
  Transmission Date: 20150529
  Serious: Yes (Hospitalization)
  Sender: FDA-Public Use
  Company Number: US-BAYER-201011096NA

PATIENT
  Age: 48 Year
  Sex: Female
  Weight: 90.7 kg

DRUGS (32)
  1. LOTREL [Concomitant]
     Active Substance: AMLODIPINE BESYLATE\BENAZEPRIL HYDROCHLORIDE
     Dosage: 10/20 MG CAPSULE DAILY
     Route: 048
     Dates: start: 20050720
  2. BENAZEPRIL [Concomitant]
     Active Substance: BENAZEPRIL\BENAZEPRIL HYDROCHLORIDE
     Dosage: 20 MG, UNK
     Route: 048
     Dates: start: 20050823
  3. AMLODIPINE/BENAZEPINE [Concomitant]
     Dosage: 10/20 MG DAILY
     Route: 048
     Dates: start: 20070618
  4. LORTAB [Concomitant]
     Active Substance: ACETAMINOPHEN\HYDROCODONE BITARTRATE
     Dosage: UNK UNK, QID
     Route: 048
  5. BUPROPION SR [Concomitant]
     Active Substance: BUPROPION
     Dosage: 150 MG, UNK
     Route: 048
     Dates: start: 20051101
  6. METHYLPREDNISOLONE [METHYLPREDNISOLONE] [Concomitant]
     Dosage: 4 MG, UNK
     Route: 048
     Dates: start: 20070601
  7. YAZ [Suspect]
     Active Substance: DROSPIRENONE\ETHINYL ESTRADIOL
     Dosage: UNK UNK, QD
     Route: 048
  8. LIPITOR [Concomitant]
     Active Substance: ATORVASTATIN CALCIUM
     Dosage: 40 MG, UNK
     Route: 048
     Dates: start: 20050517
  9. LIPITOR [Concomitant]
     Active Substance: ATORVASTATIN CALCIUM
     Dosage: 40 MG, QD
     Route: 048
     Dates: start: 20060609
  10. DIAZEPAM. [Concomitant]
     Active Substance: DIAZEPAM
     Dosage: 5 MG, UNK
     Route: 048
     Dates: start: 20050918
  11. CLINDAMYCIN [Concomitant]
     Active Substance: CLINDAMYCIN\CLINDAMYCIN PHOSPHATE
     Dosage: 300 MG, UNK
     Route: 048
     Dates: start: 20060628
  12. WELLBUTRIN [Concomitant]
     Active Substance: BUPROPION HYDROCHLORIDE
     Route: 048
  13. OCELLA [Suspect]
     Active Substance: DROSPIRENONE\ETHINYL ESTRADIOL
     Dosage: UNK UNK, QD
     Route: 048
     Dates: start: 20080714, end: 20081213
  14. ROCEPHIN [Concomitant]
     Active Substance: CEFTRIAXONE SODIUM
  15. WARFARIN [Concomitant]
     Active Substance: WARFARIN
  16. CYCLOBENZAPRINE [Concomitant]
     Active Substance: CYCLOBENZAPRINE
     Dosage: 10 MG, QID
     Dates: start: 20050726
  17. RHINOCORT AQUA [Concomitant]
     Active Substance: BUDESONIDE
     Dosage: 32 ?G, UNK
     Route: 049
     Dates: start: 20051111
  18. FLUCONAZOLE. [Concomitant]
     Active Substance: FLUCONAZOLE
     Dosage: 150 MG, UNK
     Route: 048
     Dates: start: 20050920
  19. FERROUS SULFATE [Concomitant]
     Active Substance: FERROUS SULFATE\FERROUS SULFATE, DRIED
     Dosage: 325 MG, BID
     Route: 048
     Dates: start: 20051108
  20. DIOVAN HCT [Concomitant]
     Active Substance: HYDROCHLOROTHIAZIDE\VALSARTAN
     Dosage: UNK
     Route: 048
     Dates: start: 20070217
  21. COLESTID [Concomitant]
     Active Substance: COLESTIPOL HYDROCHLORIDE
  22. HEPARIN [Concomitant]
     Active Substance: HEPARIN SODIUM
  23. XANAX [Concomitant]
     Active Substance: ALPRAZOLAM
     Route: 048
  24. TRIAMTERENE AND HYDROCHLOROTHIAZIDE [Concomitant]
     Active Substance: HYDROCHLOROTHIAZIDE\TRIAMTERENE
     Dosage: 2 TABLETS DAILY
     Route: 048
     Dates: start: 20050419
  25. AZITHROMYCIN [Concomitant]
     Active Substance: AZITHROMYCIN ANHYDROUS
     Dosage: 250 MG, UNK
     Route: 048
     Dates: start: 20050913
  26. HYDROCODONE BIT/APAP [Concomitant]
     Active Substance: ACETAMINOPHEN\HYDROCODONE BITARTRATE
     Indication: PAIN
     Dosage: UNK UNK, Q4HR
     Dates: start: 20060127
  27. YASMIN [Suspect]
     Active Substance: DROSPIRENONE\ETHINYL ESTRADIOL
     Dosage: UNK UNK, QD
     Route: 048
     Dates: start: 20051108, end: 20061022
  28. YASMIN [Suspect]
     Active Substance: DROSPIRENONE\ETHINYL ESTRADIOL
     Dosage: UNK
     Dates: start: 20080204, end: 20080615
  29. ALPRAZOLAM. [Concomitant]
     Active Substance: ALPRAZOLAM
     Dosage: 1 MG, QID
     Route: 048
     Dates: start: 20051123
  30. PROMETHAZINE [Concomitant]
     Active Substance: PROMETHAZINE\PROMETHAZINE HYDROCHLORIDE
     Dosage: 25 MG, PRN
     Dates: start: 20060605
  31. CEFUROXIME. [Concomitant]
     Active Substance: CEFUROXIME
     Dosage: 500 MG, UNK
     Route: 048
     Dates: start: 20070510
  32. ANTIHYPERTENSIVES [Concomitant]
     Active Substance: UNSPECIFIED INGREDIENT
     Route: 048

REACTIONS (20)
  - Sepsis [None]
  - Septic shock [None]
  - Metabolic encephalopathy [None]
  - Depression [None]
  - Leukocytosis [None]
  - Hepatic artery thrombosis [None]
  - Gallbladder enlargement [Unknown]
  - Thrombocytosis [None]
  - Pancreatitis acute [None]
  - Aortic thrombosis [Unknown]
  - Thrombosis [Unknown]
  - Splenic infarction [None]
  - Gallbladder disorder [Unknown]
  - Hepatic infarction [None]
  - Renal infarct [None]
  - Liver abscess [Recovered/Resolved]
  - Cholecystitis acute [None]
  - Acute kidney injury [None]
  - Pneumothorax [None]
  - Injury [Unknown]

NARRATIVE: CASE EVENT DATE: 200901
